FAERS Safety Report 11391965 (Version 1)
Quarter: 2015Q3

REPORT INFORMATION
  Report Type: Spontaneous
  Country: GB (occurrence: None)
  Receive Date: 20150814
  Receipt Date: 20150814
  Transmission Date: 20151125
  Serious: Yes (Hospitalization)
  Sender: FDA-Public Use
  Company Number: GB2015K4805SPO

PATIENT
  Age: 78 Year
  Sex: Male

DRUGS (15)
  1. ASACOL [Suspect]
     Active Substance: MESALAMINE
     Indication: COLITIS ULCERATIVE
     Route: 048
     Dates: start: 201503
  2. CLOPIDOGREL [Concomitant]
     Active Substance: CLOPIDOGREL BISULFATE
  3. LANSOPRAZOLE GENERIC (LANSOPRAZOLE) UNKNOWN [Suspect]
     Active Substance: LANSOPRAZOLE
     Indication: HYPERCHLORHYDRIA
     Route: 048
  4. ASACOL [Suspect]
     Active Substance: MESALAMINE
     Indication: COLITIS ULCERATIVE
     Route: 048
     Dates: start: 201503
  5. AMLODIPINE [Concomitant]
     Active Substance: AMLODIPINE BESYLATE
  6. INDAPAMIDE. [Concomitant]
     Active Substance: INDAPAMIDE
  7. CALCIUM CARBONATE WORLD (CALCIUM CARBONATE) UNKNOWN [Suspect]
     Active Substance: CALCIUM CARBONATE
     Indication: DYSPEPSIA
  8. ADCAL-D3 (CALCIUM CARBONATE,CHOLECALCIFEROL CONCENTRATE(POWDER FORM), COLECALCIFEROL, COLECALCIFEROL CONCENTRATE (POWDER FORM), DESTAB CALCIUM CARBONATE 90 SE) [Suspect]
     Active Substance: CALCIUM CARBONATE\CHOLECALCIFEROL
     Indication: DYSPEPSIA
     Route: 048
     Dates: start: 201503
  9. GLICLAZIDE [Concomitant]
     Active Substance: GLICLAZIDE
  10. PERINDOPRIL ARGININE [Concomitant]
     Active Substance: PERINDOPRIL ARGININE
  11. CETIRIZINE [Concomitant]
     Active Substance: CETIRIZINE HYDROCHLORIDE
  12. LINAGLIPTIN (LINAGLIPTIN,BI 1356 BS FREE BASE) [Concomitant]
  13. PREDNISOLONE. [Concomitant]
     Active Substance: PREDNISOLONE
  14. ATORVASTATIN [Concomitant]
     Active Substance: ATORVASTATIN
  15. DOXAZOSIN [Concomitant]
     Active Substance: DOXAZOSIN\DOXAZOSIN MESYLATE

REACTIONS (5)
  - Haemoglobin decreased [None]
  - Drug interaction [None]
  - Colitis ulcerative [None]
  - Acute kidney injury [None]
  - Gastric pH increased [None]
